FAERS Safety Report 13256694 (Version 1)
Quarter: 2017Q1

REPORT INFORMATION
  Report Type: Spontaneous
  Country: US (occurrence: US)
  Receive Date: 20170220
  Receipt Date: 20170220
  Transmission Date: 20170428
  Serious: Yes (Other)
  Sender: FDA-Public Use
  Company Number: None

PATIENT
  Age: 53 Year
  Sex: Male
  Weight: 75.15 kg

DRUGS (5)
  1. ZYRTEC [Concomitant]
     Active Substance: CETIRIZINE HYDROCHLORIDE
  2. MULTI-VITAMIN [Concomitant]
     Active Substance: .ALPHA.-TOCOPHEROL ACETATE, DL-\ASCORBIC ACID\CYANOCOBALAMIN\FLUORIDE ION\FOLIC ACID\NIACIN\PYRIDOXINE\RIBOFLAVIN\THIAMINE\VITAMIN A\VITAMIN D
  3. ZANTAC [Concomitant]
     Active Substance: RANITIDINE HYDROCHLORIDE
  4. PICATO [Suspect]
     Active Substance: INGENOL MEBUTATE
     Indication: ACTINIC KERATOSIS
     Dosage: 2 TUBES DAILY TOPICAL
     Route: 061
     Dates: start: 20170129, end: 20170130
  5. FLUCITASONE PROPIONATE [Concomitant]

REACTIONS (9)
  - Middle insomnia [None]
  - Tremor [None]
  - Arrhythmia [None]
  - Dizziness [None]
  - Nasal discomfort [None]
  - Nausea [None]
  - Rhinalgia [None]
  - Hyperhidrosis [None]
  - Presyncope [None]

NARRATIVE: CASE EVENT DATE: 20170131
